FAERS Safety Report 23882336 (Version 4)
Quarter: 2025Q1

REPORT INFORMATION
  Report Type: Spontaneous
  Country: US (occurrence: US)
  Receive Date: 20240522
  Receipt Date: 20250307
  Transmission Date: 20250409
  Serious: Yes (Other)
  Sender: SANOFI AVENTIS
  Company Number: US-SA-SAC20240520000234

PATIENT
  Age: 57 Year
  Sex: Female
  Weight: 94.256 kg

DRUGS (14)
  1. DUPIXENT [Suspect]
     Active Substance: DUPILUMAB
     Indication: Neurodermatitis
     Dosage: 300 MG, QOW
     Route: 058
     Dates: start: 201910
  2. DUPIXENT [Suspect]
     Active Substance: DUPILUMAB
     Indication: Dermatitis atopic
  3. DUPIXENT [Suspect]
     Active Substance: DUPILUMAB
     Indication: Dermatitis atopic
  4. ESTROGENS [Concomitant]
     Active Substance: ESTROGENS
  5. EUCRISA [Concomitant]
     Active Substance: CRISABOROLE
  6. ALLEGRA ALLERGY [Concomitant]
     Active Substance: FEXOFENADINE HYDROCHLORIDE
  7. BYSTOLIC [Concomitant]
     Active Substance: NEBIVOLOL HYDROCHLORIDE
  8. MINERALS\VITAMINS [Concomitant]
     Active Substance: MINERALS\VITAMINS
  9. VITAMIN D NOS [Concomitant]
     Active Substance: CHOLECALCIFEROL\ERGOCALCIFEROL
  10. HERBALS\TURMERIC [Concomitant]
     Active Substance: HERBALS\TURMERIC
  11. EZETIMIBE [Concomitant]
     Active Substance: EZETIMIBE
  12. AMLODIPINE BESYLATE [Concomitant]
     Active Substance: AMLODIPINE BESYLATE
  13. LOSARTAN POTASSIUM [Concomitant]
     Active Substance: LOSARTAN POTASSIUM
  14. ZYRTEC [Concomitant]
     Active Substance: CETIRIZINE HYDROCHLORIDE

REACTIONS (7)
  - Hip surgery [Unknown]
  - Nausea [Recovered/Resolved]
  - COVID-19 [Unknown]
  - Injection site bruising [Unknown]
  - Neurodermatitis [Unknown]
  - Rash [Unknown]
  - Product dose omission issue [Unknown]

NARRATIVE: CASE EVENT DATE: 20241001
